FAERS Safety Report 4343800-9 (Version None)
Quarter: 2004Q2

REPORT INFORMATION
  Report Type: 
  Country: None (occurrence: None)
  Receive Date: 20040419
  Receipt Date: 20040406
  Transmission Date: 20050107
  Serious: Yes (Hospitalization)
  Sender: FDA-Public Use
  Company Number: US-JNJFOC-20040401062

PATIENT
  Age: 79 Year
  Sex: Female

DRUGS (11)
  1. INFLIXIMAB (INFLIXIMAB, RECOMBINANT) LYOPHILIZED POWDER [Suspect]
     Indication: RHEUMATOID ARTHRITIS
     Dosage: INTRAVENOUS
     Route: 042
     Dates: start: 20010315, end: 20030101
  2. ADVIL (IBURPOFEN) [Concomitant]
  3. PREDNISONE [Concomitant]
  4. ALBUTEROL INHALER (SALBUTAMOL) [Concomitant]
  5. XOPENEX (LEVOSALBUTAMOL) INHALATION [Concomitant]
  6. LANOXIN [Concomitant]
  7. ASPIRIN [Concomitant]
  8. CELEBREX [Concomitant]
  9. TUMS (CALCIUM CARBONATE) [Concomitant]
  10. PRILOSEC [Concomitant]
  11. B-COMPLEX VITAMINS (B-KOMPLEX ^LECIVA^) [Concomitant]

REACTIONS (3)
  - ATRIAL FLUTTER [None]
  - DIZZINESS [None]
  - HEART RATE INCREASED [None]
